FAERS Safety Report 7433361-X (Version None)
Quarter: 2011Q2

REPORT INFORMATION
  Report Type: 
  Country: None (occurrence: None)
  Receive Date: 20110422
  Receipt Date: 20110321
  Transmission Date: 20111010
  Serious: Yes (Hospitalization, Other)
  Sender: FDA-Public Use
  Company Number: CA-GENZYME-FLUD-1000323

PATIENT
  Sex: Male
  Weight: 134 kg

DRUGS (47)
  1. FLUDARA [Suspect]
     Indication: BONE MARROW CONDITIONING REGIMEN
  2. MOZOBIL [Suspect]
     Indication: ACUTE MYELOID LEUKAEMIA
     Dosage: 23 MG, UNK
     Route: 058
     Dates: start: 20100927, end: 20100927
  3. PHENYTOIN [Concomitant]
     Indication: PROPHYLAXIS OF NAUSEA AND VOMITING
     Dosage: 100 MG, TID
     Route: 048
     Dates: start: 20100926, end: 20101003
  4. MORPHINE [Concomitant]
     Indication: HEADACHE
     Dosage: 2 MG, UNK
     Route: 042
     Dates: start: 20100927, end: 20100930
  5. PEPCID [Concomitant]
     Indication: GASTROOESOPHAGEAL REFLUX PROPHYLAXIS
     Dosage: 20 MG, UNK
     Route: 042
     Dates: start: 20101003, end: 20101016
  6. PREDNISONE [Concomitant]
     Indication: GRAFT VERSUS HOST DISEASE
     Dosage: 50 MG, UNK
     Route: 048
     Dates: start: 20101031
  7. ATIVAN [Concomitant]
     Indication: PRODUCT USED FOR UNKNOWN INDICATION
     Dosage: 1-2 MG, QHS, PRN
     Route: 048
  8. TAZOCIN [Concomitant]
     Indication: FEBRILE NEUTROPENIA
     Dosage: 4.5 G, TID
     Route: 042
     Dates: start: 20101012, end: 20101017
  9. PANTOPRAZOLE [Concomitant]
     Indication: PROPHYLAXIS
     Dosage: 40 MG, QD
     Route: 048
     Dates: start: 20100924, end: 20101004
  10. MICAFUNGIN [Concomitant]
     Indication: INFECTION PROPHYLAXIS
     Dosage: 50 MG, QD
     Route: 042
     Dates: start: 20100927, end: 20101017
  11. DEXAMETHASONE [Concomitant]
     Indication: NAUSEA
     Dosage: 10 MG, QD
     Route: 042
     Dates: start: 20100927, end: 20101001
  12. NYSTATIN [Concomitant]
     Indication: OEDEMA MOUTH
     Dosage: 1.5 G, QS
     Route: 061
     Dates: start: 20101026, end: 20101102
  13. LASIX [Concomitant]
     Indication: PROPHYLAXIS
     Dosage: 20 MG, BID
     Route: 042
     Dates: start: 20101015, end: 20101016
  14. RANITIDINE [Concomitant]
     Indication: PROPHYLAXIS
     Dosage: 150 MG, BID
     Route: 048
     Dates: start: 20101016, end: 20101019
  15. MAXERAN [Concomitant]
     Indication: PROPHYLAXIS OF NAUSEA AND VOMITING
     Dosage: 30 MG, UNK
     Route: 042
     Dates: start: 20101003, end: 20101012
  16. CYCLOSPORINE [Concomitant]
     Dosage: 210 MG, UNK
     Route: 042
     Dates: start: 20101014, end: 20101014
  17. SEPTRA [Concomitant]
     Indication: PRODUCT USED FOR UNKNOWN INDICATION
     Dosage: 2 UNK, TIW ON MONDAY, WEDNESDAY AND FRIDAY
     Route: 048
  18. CLONAZEPAM [Concomitant]
     Indication: DEPRESSION
     Dosage: 0.5 MG, BID
     Route: 048
     Dates: start: 20101026, end: 20101029
  19. MGSO4 AND KCL [Concomitant]
     Indication: PROPHYLAXIS
     Dosage: 5 G, PRN
     Route: 042
     Dates: start: 20101006, end: 20101030
  20. ACYCLOVIR [Concomitant]
     Indication: ANTIVIRAL PROPHYLAXIS
     Dosage: 200 MG, BID
     Route: 048
     Dates: start: 20101003, end: 20101017
  21. BENADRYL [Concomitant]
     Indication: ALLERGY PROPHYLAXIS
     Dosage: 50 MG, TID
     Route: 042
     Dates: start: 20101004, end: 20101013
  22. BUSULFAN [Suspect]
     Indication: BONE MARROW CONDITIONING REGIMEN
     Dosage: 300 MG, UNK
     Route: 042
     Dates: start: 20100927, end: 20100930
  23. NORVASC [Concomitant]
     Indication: HYPERTENSION
     Dosage: 5 G, QD
     Route: 048
     Dates: start: 20100926, end: 20100930
  24. ALLOPURINOL [Concomitant]
     Indication: PROPHYLAXIS
     Dosage: 300 MG, TID
     Route: 048
     Dates: start: 20100924, end: 20101003
  25. GRANISETRON HCL [Concomitant]
     Indication: NAUSEA
     Dosage: 1 MG, QD
     Route: 042
     Dates: start: 20100927, end: 20100930
  26. IMOVANE [Concomitant]
     Indication: INSOMNIA
     Dosage: 7.5 MG, PRN
     Dates: start: 20101004, end: 20101023
  27. METOPROLOL [Concomitant]
     Indication: BLOOD PRESSURE
     Dosage: 5 MG, TID
     Route: 048
     Dates: start: 20101013, end: 20101016
  28. CYCLOSPORINE [Concomitant]
     Indication: GRAFT VERSUS HOST DISEASE
     Dosage: 150 MG, BID
     Route: 048
  29. BUDESONIDE [Concomitant]
     Indication: PROPHYLAXIS AGAINST GRAFT VERSUS HOST DISEASE
     Dosage: 9 MG, QD
     Route: 048
     Dates: start: 20101022, end: 20101102
  30. GANCICLOVIR [Concomitant]
     Indication: CYTOMEGALOVIRUS TEST POSITIVE
     Dosage: 600 MG, UNK
     Route: 042
     Dates: start: 20101026, end: 20101102
  31. MAGNESIUM OXIDE [Concomitant]
     Indication: SUPPLEMENTATION THERAPY
     Dosage: 835 MG, UNK
     Route: 048
     Dates: start: 20101017, end: 20101018
  32. LISINOPRIL [Concomitant]
     Indication: PRODUCT USED FOR UNKNOWN INDICATION
     Dosage: 10 MG, QD
     Route: 048
  33. CYCLOSPORINE [Concomitant]
     Dosage: 280 MG, UNK
     Route: 042
     Dates: start: 20101001, end: 20101010
  34. CYCLOSPORINE [Concomitant]
     Dosage: 300 MG, UNK
     Route: 048
     Dates: start: 20101017, end: 20101017
  35. LISINOPRIL [Concomitant]
     Indication: HYPERTENSION
     Dosage: 5 MG, QD
     Route: 048
     Dates: start: 20100927, end: 20101017
  36. NORVASC [Concomitant]
     Indication: PRODUCT USED FOR UNKNOWN INDICATION
     Dosage: 10 MG, QD
     Route: 048
     Dates: start: 20101027, end: 20101102
  37. CYCLOSPORINE [Concomitant]
     Dosage: 90 MG, UNK
     Route: 042
     Dates: start: 20101028, end: 20101030
  38. MYCOPHENOLATE MEFETIL [Concomitant]
     Indication: PRODUCT USED FOR UNKNOWN INDICATION
     Dosage: 1500 MG, UNK
     Route: 048
     Dates: start: 20101002
  39. DOMPERIDONE [Concomitant]
     Indication: NAUSEA
     Dosage: 10 MG, QHS
     Route: 048
     Dates: start: 20101016, end: 20101018
  40. GANCICLOVIR [Concomitant]
     Indication: CYTOMEGALOVIRUS INFECTION
     Dosage: UNK
     Route: 065
  41. CYCLOSPORINE [Concomitant]
     Dosage: 240 MG, UNK
     Route: 042
     Dates: start: 20101011, end: 20101013
  42. CYCLOSPORINE [Concomitant]
     Dosage: 100 MG, UNK
     Route: 048
     Dates: start: 20101030, end: 20101102
  43. FLUDARA [Suspect]
     Indication: ACUTE MYELOID LEUKAEMIA
     Dosage: 102 MG, UNK
     Route: 042
     Dates: start: 20100927, end: 20100930
  44. CIPROFLOXACIN [Concomitant]
     Indication: INFECTION PROPHYLAXIS
     Dosage: 500 MG, QD
     Route: 048
     Dates: start: 20100816, end: 20101025
  45. MICAFUNGIN [Concomitant]
     Indication: ANTIFUNGAL PROPHYLAXIS
     Dosage: 50 MG, QD
     Route: 042
     Dates: start: 20101023, end: 20101024
  46. CYCLOSPORINE [Concomitant]
     Dosage: 190 MG, BID
     Route: 042
     Dates: start: 20101015, end: 20101016
  47. CYCLOSPORINE [Concomitant]
     Dosage: 100 MG, UNK
     Route: 048
     Dates: start: 20101018, end: 20101018

REACTIONS (11)
  - BK VIRUS INFECTION [None]
  - ACUTE GRAFT VERSUS HOST DISEASE IN INTESTINE [None]
  - BACTERIAL SEPSIS [None]
  - DEHYDRATION [None]
  - CYTOMEGALOVIRUS INFECTION [None]
  - HYPOTENSION [None]
  - ACUTE GRAFT VERSUS HOST DISEASE IN SKIN [None]
  - HYPERBILIRUBINAEMIA [None]
  - CYSTITIS HAEMORRHAGIC [None]
  - SEPSIS [None]
  - MUCOSAL INFLAMMATION [None]
